FAERS Safety Report 22958195 (Version 2)
Quarter: 2023Q4

REPORT INFORMATION
  Report Type: Report from Study
  Country: US (occurrence: US)
  Receive Date: 20230919
  Receipt Date: 20231030
  Transmission Date: 20240109
  Serious: No
  Sender: FDA-Public Use
  Company Number: US-SA-SAC20230912000940

PATIENT
  Age: 83 Year
  Sex: Male

DRUGS (2)
  1. DUPILUMAB [Suspect]
     Active Substance: DUPILUMAB
     Indication: Asthma
     Dosage: 600 MG, FREQUENCY: OTHER
     Route: 058
     Dates: start: 202307, end: 202307
  2. DUPILUMAB [Suspect]
     Active Substance: DUPILUMAB
     Dosage: 300 MG, QOW
     Route: 058
     Dates: start: 20230926

REACTIONS (3)
  - Diarrhoea [Unknown]
  - Brain fog [Unknown]
  - Speech disorder [Unknown]

NARRATIVE: CASE EVENT DATE: 20230101
